FAERS Safety Report 7608325-3 (Version None)
Quarter: 2011Q3

REPORT INFORMATION
  Report Type: 
  Country: None (occurrence: None)
  Receive Date: 20110706
  Receipt Date: 20110623
  Transmission Date: 20111222
  Serious: Yes (Life-Threatening, Hospitalization)
  Sender: FDA-Public Use
  Company Number: ABR_00172_2011

PATIENT
  Sex: Male

DRUGS (16)
  1. ERYPED [Suspect]
     Indication: GASTROINTESTINAL MOTILITY DISORDER
     Dosage: (UNK (2.61 MG) ORAL)
     Route: 048
     Dates: start: 20110530, end: 20110603
  2. ERYPED [Suspect]
     Indication: WEIGHT GAIN POOR
     Dosage: (UNK (2.61 MG) ORAL)
     Route: 048
     Dates: start: 20110530, end: 20110603
  3. FOLIC ACID [Concomitant]
  4. STEINHARD HYDROCHLOROTHIAZIDE [Concomitant]
  5. CAFFEINE CITRATE [Concomitant]
  6. GAVISCON /00237601/ [Concomitant]
  7. FUROSEMIDE [Concomitant]
  8. RANITIDINE [Concomitant]
  9. AMILORIDE HYDROCHLORIDE [Concomitant]
  10. DALIVIT [Concomitant]
  11. DEXAMETHASONE [Concomitant]
  12. SODIUM PHOSPHATE MONO BASIC (ANHYDRATE) [Concomitant]
  13. NYSTATIN [Concomitant]
  14. SODIUM FEREDETATE [Concomitant]
  15. SPIRONOLACTONE [Concomitant]
  16. FOLLICARE NUTRITIONAL SUPPLEMENT [Concomitant]

REACTIONS (3)
  - BLOOD CREATININE INCREASED [None]
  - FUNCTIONAL GASTROINTESTINAL DISORDER [None]
  - INTESTINAL DILATATION [None]
